FAERS Safety Report 4817353-2 (Version None)
Quarter: 2005Q4

REPORT INFORMATION
  Report Type: 
  Country: None (occurrence: None)
  Receive Date: 20051031
  Receipt Date: 20051018
  Transmission Date: 20060501
  Serious: Yes (Other)
  Sender: FDA-Public Use
  Company Number: 2005143211

PATIENT
  Age: 20 Year
  Sex: Female

DRUGS (1)
  1. UNISOM [Suspect]
     Indication: INTENTIONAL OVERDOSE
     Dosage: 12 SLEEPGELS ONCE, ORAL
     Route: 048
     Dates: start: 20051018, end: 20051018

REACTIONS (2)
  - INTENTIONAL OVERDOSE [None]
  - LETHARGY [None]
